FAERS Safety Report 21871256 (Version 4)
Quarter: 2023Q1

REPORT INFORMATION
  Report Type: Spontaneous
  Country: FR (occurrence: FR)
  Receive Date: 20230117
  Receipt Date: 20230331
  Transmission Date: 20230418
  Serious: Yes (Other)
  Sender: FDA-Public Use
  Company Number: FR-TEVA-2023-FR-2845661

PATIENT
  Age: 47 Year
  Sex: Female

DRUGS (4)
  1. AMOXICILLIN [Suspect]
     Active Substance: AMOXICILLIN
     Indication: Superinfection
     Route: 048
     Dates: start: 20230103, end: 20230104
  2. AMOXICILLIN [Suspect]
     Active Substance: AMOXICILLIN
     Indication: Bronchitis
  3. OXOMEMAZINE [Concomitant]
     Active Substance: OXOMEMAZINE
     Indication: Product used for unknown indication
  4. ACETAMINOPHEN [Concomitant]
     Active Substance: ACETAMINOPHEN
     Indication: Product used for unknown indication

REACTIONS (7)
  - Angioedema [Recovered/Resolved]
  - Pharyngeal swelling [Recovered/Resolved]
  - Vomiting [Recovered/Resolved]
  - Mental fatigue [Recovered/Resolved]
  - Fatigue [Recovered/Resolved]
  - Pharyngeal oedema [Recovered/Resolved]
  - Rash [Recovered/Resolved]

NARRATIVE: CASE EVENT DATE: 20230101
